FAERS Safety Report 8398584-4 (Version None)
Quarter: 2012Q2

REPORT INFORMATION
  Report Type: 
  Country: None (occurrence: None)
  Receive Date: 20120531
  Receipt Date: 20120525
  Transmission Date: 20120825
  Serious: Yes (Life-Threatening, Hospitalization)
  Sender: FDA-Public Use
  Company Number: US-ROCHE-1063682

PATIENT
  Sex: Female
  Weight: 57.6 kg

DRUGS (8)
  1. DOCETAXEL [Suspect]
     Indication: BREAST CANCER
     Dosage: TEMPORARILY INTERRUPTED
     Route: 042
     Dates: start: 20120413, end: 20120504
  2. HERCEPTIN [Suspect]
     Indication: BREAST CANCER
     Dosage: LOADING DOSE, TEMPORARILY INTERRUPTED
     Route: 042
     Dates: start: 20120413, end: 20120504
  3. ZOFRAN [Concomitant]
     Dates: start: 20120413
  4. LOVAZA [Concomitant]
     Dates: start: 20120402
  5. CARBOPLATIN [Suspect]
     Indication: BREAST CANCER
     Route: 042
     Dates: start: 20120413
  6. TYLENOL [Concomitant]
     Dates: start: 20120326
  7. CLINDAMYCIN [Concomitant]
     Dates: start: 20120326
  8. PERTUZUMAB [Suspect]
     Indication: BREAST CANCER
     Dosage: LOADING DOSE
     Route: 042
     Dates: start: 20120413

REACTIONS (4)
  - DISSEMINATED INTRAVASCULAR COAGULATION [None]
  - SEPSIS [None]
  - FEBRILE NEUTROPENIA [None]
  - DIARRHOEA [None]
